FAERS Safety Report 18050929 (Version 1)
Quarter: 2020Q3

REPORT INFORMATION
  Report Type: Spontaneous
  Country: CA (occurrence: CA)
  Receive Date: 20200721
  Receipt Date: 20200721
  Transmission Date: 20201103
  Serious: Yes (Other)
  Sender: FDA-Public Use
  Company Number: CA-TEVA-2020-CA-1801685

PATIENT
  Sex: Female

DRUGS (8)
  1. DOCETAXEL. [Concomitant]
     Active Substance: DOCETAXEL
  2. PACLITAXEL. [Concomitant]
     Active Substance: PACLITAXEL
  3. TAMOXIFEN CITRATE. [Suspect]
     Active Substance: TAMOXIFEN CITRATE
     Indication: PRODUCT USED FOR UNKNOWN INDICATION
     Route: 048
  4. ANASTROZOLE. [Suspect]
     Active Substance: ANASTROZOLE
     Indication: PRODUCT USED FOR UNKNOWN INDICATION
     Route: 048
  5. CYCLOPHOSPHAMIDE. [Concomitant]
     Active Substance: CYCLOPHOSPHAMIDE
  6. IBRANCE [Suspect]
     Active Substance: PALBOCICLIB
     Indication: PRODUCT USED FOR UNKNOWN INDICATION
     Route: 065
  7. DOXORUBICIN/CYCLOPHOSPHAMIDE [Concomitant]
  8. EXEMESTANE. [Concomitant]
     Active Substance: EXEMESTANE
     Route: 048

REACTIONS (3)
  - Disease progression [Unknown]
  - Metastasis [Unknown]
  - Disease recurrence [Unknown]
